FAERS Safety Report 5457806-X (Version None)
Quarter: 2007Q3

REPORT INFORMATION
  Report Type: 
  Country: None (occurrence: None)
  Receive Date: 20070918
  Receipt Date: 20070906
  Transmission Date: 20080115
  Serious: Yes (Hospitalization, Other)
  Sender: FDA-Public Use
  Company Number: US-PFIZER INC-2007075461

PATIENT
  Sex: Female

DRUGS (5)
  1. NEURONTIN [Suspect]
     Indication: POST HERPETIC NEURALGIA
  2. VERAPAMIL [Concomitant]
  3. TRIAMTERENE AND HYDROCHLOROTHIAZID ^HARRIS^ [Concomitant]
  4. VITAMINS [Concomitant]
  5. ALPRAZOLAM [Concomitant]

REACTIONS (4)
  - ANEURYSM [None]
  - PAIN [None]
  - RENAL CELL CARCINOMA STAGE UNSPECIFIED [None]
  - WEIGHT DECREASED [None]
